FAERS Safety Report 24540567 (Version 1)
Quarter: 2024Q4

REPORT INFORMATION
  Report Type: Spontaneous
  Country: US (occurrence: US)
  Receive Date: 20241023
  Receipt Date: 20241023
  Transmission Date: 20250115
  Serious: Yes (Death, Other)
  Sender: SANDOZ
  Company Number: US-NOVPHSZ-PHEH2019US026339

PATIENT
  Age: 76 Year
  Sex: Male

DRUGS (1)
  1. PALONOSETRON [Suspect]
     Active Substance: PALONOSETRON
     Indication: Diffuse large B-cell lymphoma
     Dosage: 0.25 MG, Q3W
     Route: 042

REACTIONS (1)
  - Death [Fatal]

NARRATIVE: CASE EVENT DATE: 20190606
